FAERS Safety Report 8965204 (Version 1)
Quarter: 2012Q4

REPORT INFORMATION
  Report Type: 
  Country: US (occurrence: US)
  Receive Date: 20121213
  Receipt Date: 20121213
  Transmission Date: 20130627
  Serious: No
  Sender: FDA-Public Use
  Company Number: US-BRISTOL-MYERS SQUIBB COMPANY-16581480

PATIENT
  Age: 51 Year
  Sex: Female

DRUGS (1)
  1. IXEMPRA [Suspect]
     Dosage: completed all her infusions
     Dates: start: 20120201

REACTIONS (1)
  - Malaise [Unknown]
